FAERS Safety Report 8281255-2 (Version None)
Quarter: 2012Q2

REPORT INFORMATION
  Report Type: 
  Country: None (occurrence: None)
  Receive Date: 20120413
  Receipt Date: 20120329
  Transmission Date: 20120825
  Serious: Yes (Hospitalization, Other)
  Sender: FDA-Public Use
  Company Number: AR-AMGEN-ARGSP2012019005

PATIENT
  Age: 81 Year
  Sex: Female

DRUGS (4)
  1. CORITENSIL [Concomitant]
     Dosage: UNK
  2. PREDNISONE TAB [Concomitant]
     Dosage: UNK
  3. ENBREL [Suspect]
     Indication: RHEUMATOID ARTHRITIS
     Dosage: 50 MG, Q2WK
     Dates: start: 20100918, end: 20111001
  4. ENBREL [Suspect]
     Dosage: 50 MG, EVERY 15 DAYS
     Dates: start: 20120201

REACTIONS (3)
  - CEREBROVASCULAR ACCIDENT [None]
  - MYOCARDIAL INFARCTION [None]
  - ARRHYTHMIA [None]
